FAERS Safety Report 7992235-6 (Version None)
Quarter: 2011Q4

REPORT INFORMATION
  Report Type: 
  Country: None (occurrence: None)
  Receive Date: 20111219
  Receipt Date: 20111006
  Transmission Date: 20120403
  Serious: No
  Sender: FDA-Public Use
  Company Number: US-ASTRAZENECA-2011SE59955

PATIENT
  Age: 70 Year
  Sex: Female
  Weight: 67.1 kg

DRUGS (4)
  1. CRESTOR [Suspect]
     Indication: DIABETES MELLITUS
     Route: 048
     Dates: start: 20100101
  2. SYNTHROID [Concomitant]
     Indication: THYROID DISORDER
  3. RAMITRIL [Concomitant]
     Indication: HYPERTENSION
  4. NADOLOL [Concomitant]
     Indication: HEART RATE INCREASED

REACTIONS (2)
  - MUSCLE SPASMS [None]
  - OFF LABEL USE [None]
